FAERS Safety Report 4511916-X (Version None)
Quarter: 2004Q4

REPORT INFORMATION
  Report Type: 
  Country: None (occurrence: None)
  Receive Date: 20041129
  Receipt Date: 20030517
  Transmission Date: 20050328
  Serious: Yes (Disabling, Other)
  Sender: FDA-Public Use
  Company Number: PHEH2003US04141

PATIENT
  Age: 38 Year
  Sex: Male

DRUGS (2)
  1. LAMISIL [Suspect]
     Indication: FUNGAL SKIN INFECTION
     Dosage: 250 MG, QD
     Route: 048
     Dates: start: 20030416
  2. LOTRIMIN [Concomitant]

REACTIONS (7)
  - CONJUNCTIVITIS [None]
  - OPTIC NERVE INJURY [None]
  - OPTIC NEURITIS [None]
  - PAPILLOEDEMA [None]
  - VISION BLURRED [None]
  - VISUAL ACUITY REDUCED [None]
  - VISUAL FIELD DEFECT [None]
